FAERS Safety Report 8481620 (Version 2)
Quarter: 2012Q4

REPORT INFORMATION
  Report Type: 
  Country: JP (occurrence: JP)
  Receive Date: 20120329
  Receipt Date: 20121015
  Transmission Date: 20130627
  Serious: Yes (Disabling)
  Sender: FDA-Public Use
  Company Number: JP-GE HEALTHCARE MEDICAL DIAGNOSTICS-OSCN-NO-0706S-0267

PATIENT
  Sex: Male
  Weight: 57 kg

DRUGS (17)
  1. OMNISCAN [Suspect]
     Indication: ACOUSTIC NEUROMA
     Route: 042
     Dates: start: 20010125, end: 20010125
  2. OMNISCAN [Suspect]
     Indication: HYDROCEPHALUS
     Route: 042
     Dates: start: 20010712, end: 20010712
  3. OMNISCAN [Suspect]
     Route: 042
     Dates: start: 20010808, end: 20010808
  4. OMNISCAN [Suspect]
     Dosage: 11.4 mL (0.2 mL/kg)
     Route: 042
     Dates: start: 20030402, end: 20030402
  5. OMNISCAN [Suspect]
     Dosage: 11.4 mL (0.2 mL/kg)
     Route: 042
     Dates: start: 20031119, end: 20031119
  6. OMNISCAN [Suspect]
     Dosage: 11.4 mL (0.2 mL/kg)
     Route: 042
     Dates: start: 20040519, end: 20040519
  7. OMNISCAN [Suspect]
     Dosage: 11.4 mL (0.2 mL/kg)
     Route: 042
     Dates: start: 20041117, end: 20041117
  8. OMNISCAN [Suspect]
     Route: 042
     Dates: start: 20050225, end: 20050225
  9. TAKEPRON OD [Concomitant]
     Indication: GASTRIC ULCER
     Route: 048
  10. MARZULENE-S (LEVOGLUTAMIDE W/SODIUM GUALENATE) [Concomitant]
     Indication: GASTRIC ULCER
     Route: 048
  11. SODIUM CALCIUM [Concomitant]
     Indication: HYPERLIPIDAEMIA
     Route: 048
  12. ISOSORBIDE DINITRATE (FRANDOL) [Concomitant]
     Indication: ANGINA PECTORIS
     Route: 048
  13. ETIZOLAM (DEPAS) [Concomitant]
     Indication: INSOMNIA
     Route: 048
  14. ETHYL ICOSAPENATATE (EPADEL S) [Concomitant]
     Indication: HYPERLIPIDAEMIA
     Route: 048
  15. DILTIAZEM HYDROCHLORIDE (HERBESSER R) [Concomitant]
     Indication: HYPERTENSION
     Route: 048
  16. WARFARIN [Concomitant]
     Indication: ATRIAL FIBRILLATION
     Route: 048
  17. GADOTERIDOL (PROHANCE) [Concomitant]

REACTIONS (11)
  - Nephrogenic systemic fibrosis [Not Recovered/Not Resolved]
  - Joint stiffness [Not Recovered/Not Resolved]
  - Grip strength decreased [Not Recovered/Not Resolved]
  - Skin induration [Not Recovered/Not Resolved]
  - Gait disturbance [Not Recovered/Not Resolved]
  - Joint range of motion decreased [Not Recovered/Not Resolved]
  - Biopsy skin abnormal [Not Recovered/Not Resolved]
  - Sclerema [Not Recovered/Not Resolved]
  - Skin lesion [Not Recovered/Not Resolved]
  - Swelling [Not Recovered/Not Resolved]
  - Haemodialysis [None]
